FAERS Safety Report 13599754 (Version 1)
Quarter: 2017Q2

REPORT INFORMATION
  Report Type: Spontaneous
  Country: DE (occurrence: DE)
  Receive Date: 20170601
  Receipt Date: 20170601
  Transmission Date: 20170830
  Serious: Yes (Other)
  Sender: FDA-Public Use
  Company Number: PHHY2017DE075410

PATIENT
  Age: 66 Year
  Sex: Female

DRUGS (9)
  1. EVEROLIMUS [Suspect]
     Active Substance: EVEROLIMUS
     Indication: BREAST CANCER
     Dosage: 5 MG, UNK
     Route: 065
     Dates: start: 201610, end: 201702
  2. PALBOCICLIB [Concomitant]
     Active Substance: PALBOCICLIB
     Indication: PRODUCT USED FOR UNKNOWN INDICATION
     Dosage: 125 MG, UNK
     Route: 065
     Dates: start: 201702
  3. PALBOCICLIB [Concomitant]
     Active Substance: PALBOCICLIB
     Dosage: UNK
  4. DOCETAXEL. [Concomitant]
     Active Substance: DOCETAXEL
     Indication: PRODUCT USED FOR UNKNOWN INDICATION
     Dosage: 75 MG/M2,  (EVERY 3 WEEKS ABOUT 8 CYCLES (FIRST 2 CYCLES: 50 PERCERNT, LAST 6 CYCLES: 100 PERCENT)
     Route: 065
     Dates: start: 201409, end: 201502
  5. MITOXANTRONE [Concomitant]
     Active Substance: MITOXANTRONE HYDROCHLORIDE
     Indication: PRODUCT USED FOR UNKNOWN INDICATION
     Dosage: 10 MG/M2, UNK
     Route: 065
     Dates: start: 201206, end: 201610
  6. FASLODEX [Concomitant]
     Active Substance: FULVESTRANT
     Indication: PRODUCT USED FOR UNKNOWN INDICATION
     Route: 065
     Dates: start: 201702
  7. LETROZOLE. [Suspect]
     Active Substance: LETROZOLE
     Indication: BREAST CANCER
     Dosage: 5 MG, UNK
     Route: 065
     Dates: start: 201503
  8. EXEMESTANE. [Suspect]
     Active Substance: EXEMESTANE
     Indication: BREAST CANCER
     Dosage: 5 MG, UNK
     Route: 065
     Dates: start: 201610, end: 201702
  9. XGEVA [Concomitant]
     Active Substance: DENOSUMAB
     Indication: PRODUCT USED FOR UNKNOWN INDICATION
     Dosage: UNK UNK, QMO
     Route: 065
     Dates: start: 201409, end: 201702

REACTIONS (15)
  - Metastases to lymph nodes [Unknown]
  - Blood glucose abnormal [Unknown]
  - Blood creatinine abnormal [Unknown]
  - Metastasis [Unknown]
  - Metastases to lung [Unknown]
  - General physical health deterioration [Unknown]
  - Metastases to bone [Unknown]
  - Metastases to liver [Unknown]
  - Pain [Unknown]
  - Thoracic vertebral fracture [Unknown]
  - Malignant neoplasm progression [Unknown]
  - Renal function test abnormal [Unknown]
  - Breast cancer [Unknown]
  - Skin toxicity [Unknown]
  - Blood pressure abnormal [Unknown]

NARRATIVE: CASE EVENT DATE: 201602
